FAERS Safety Report 5625166-7 (Version None)
Quarter: 2008Q1

REPORT INFORMATION
  Report Type: 
  Country: None (occurrence: None)
  Receive Date: 20080208
  Receipt Date: 20080125
  Transmission Date: 20080703
  Serious: Yes (Life-Threatening, Hospitalization, Other)
  Sender: FDA-Public Use
  Company Number: FABR-1000053

PATIENT
  Age: 43 Year
  Sex: Female

DRUGS (2)
  1. FABRAZYME [Suspect]
     Indication: FABRY'S DISEASE
     Dosage: 70 UNK, Q2W, INTRAVENOUS
     Route: 042
     Dates: start: 20070126, end: 20071106
  2. LEVOTHYROXINE SODIUM [Concomitant]

REACTIONS (2)
  - CENTRAL NERVOUS SYSTEM LESION [None]
  - CEREBRAL INFARCTION [None]
